FAERS Safety Report 6315069-7 (Version None)
Quarter: 2009Q3

REPORT INFORMATION
  Report Type: 
  Country: None (occurrence: None)
  Receive Date: 20090818
  Receipt Date: 20090818
  Transmission Date: 20100115
  Serious: Yes (Life-Threatening, Hospitalization)
  Sender: FDA-Public Use
  Company Number: None

PATIENT
  Age: 6 Year
  Sex: Male
  Weight: 28.123 kg

DRUGS (2)
  1. AMOXICILLIN TRIHYDRATE SUSP 400 MG/5ML TEVA USA [Suspect]
     Indication: INFECTION PROPHYLAXIS
     Dosage: 1 1/2 TSP 2 TIMES A DAY PO
     Route: 048
     Dates: start: 20090126, end: 20090130
  2. CHILDREN'S ADVIL [Suspect]
     Indication: PYREXIA
     Dosage: 1 1/2 TSP EVERY 6-8 HIRS PO
     Route: 048
     Dates: start: 20090130, end: 20090131

REACTIONS (2)
  - NO REACTION ON PREVIOUS EXPOSURE TO DRUG [None]
  - STEVENS-JOHNSON SYNDROME [None]
